FAERS Safety Report 6822553-6 (Version None)
Quarter: 2010Q3

REPORT INFORMATION
  Report Type: 
  Country: None (occurrence: None)
  Receive Date: 20100708
  Receipt Date: 20100527
  Transmission Date: 20110219
  Serious: Yes (Other)
  Sender: FDA-Public Use
  Company Number: US-BAXTER-2010BH000503

PATIENT
  Age: 60 Year
  Sex: Male
  Weight: 124 kg

DRUGS (35)
  1. HEPARIN SODIUM [Suspect]
     Indication: PRODUCT USED FOR UNKNOWN INDICATION
     Route: 042
     Dates: start: 20071230, end: 20071230
  2. HEPARIN SODIUM [Suspect]
     Indication: HAEMODIALYSIS
     Route: 042
     Dates: start: 20071230, end: 20071230
  3. HEPARIN SODIUM [Suspect]
     Route: 042
     Dates: start: 20080110, end: 20080217
  4. HEPARIN SODIUM [Suspect]
     Route: 042
     Dates: start: 20080110, end: 20080217
  5. HEPARIN SODIUM [Suspect]
     Route: 042
     Dates: start: 20080110, end: 20080123
  6. HEPARIN SODIUM [Suspect]
     Route: 042
     Dates: start: 20080110, end: 20080123
  7. HEPARIN SODIUM [Suspect]
     Route: 042
     Dates: start: 20080218, end: 20080523
  8. HEPARIN SODIUM [Suspect]
     Route: 042
     Dates: start: 20080218, end: 20080523
  9. HEPARIN SODIUM [Suspect]
     Route: 042
     Dates: start: 20080123, end: 20080218
  10. HEPARIN SODIUM [Suspect]
     Route: 042
     Dates: start: 20080123, end: 20080218
  11. HEPARIN SODIUM [Suspect]
     Route: 042
     Dates: start: 20080125, end: 20080125
  12. HEPARIN SODIUM [Suspect]
     Route: 042
     Dates: start: 20080125, end: 20080125
  13. HEPARIN SODIUM [Suspect]
     Route: 042
     Dates: start: 20080128, end: 20080128
  14. HEPARIN SODIUM [Suspect]
     Route: 042
     Dates: start: 20080128, end: 20080128
  15. HEPARIN SODIUM [Suspect]
     Route: 042
     Dates: start: 20080120, end: 20080120
  16. HEPARIN SODIUM [Suspect]
     Route: 042
     Dates: start: 20080120, end: 20080120
  17. HEPARIN SODIUM [Suspect]
     Route: 040
     Dates: start: 20080110, end: 20080110
  18. HEPARIN SODIUM [Suspect]
     Route: 040
     Dates: start: 20080110, end: 20080110
  19. HEPARIN SODIUM [Suspect]
     Route: 042
     Dates: start: 20080218, end: 20080430
  20. HEPARIN SODIUM [Suspect]
     Route: 042
     Dates: start: 20080218, end: 20080430
  21. HEPARIN SODIUM 1,000 UNITS AND SODIUM CHLORIDE 0.9% [Suspect]
     Indication: DIALYSIS DEVICE INSERTION
     Route: 042
     Dates: start: 20080118, end: 20080118
  22. HEPARIN SODIUM 5,000 UNITS IN DEXTROSE 5% [Suspect]
     Indication: PULMONARY EMBOLISM
     Route: 042
     Dates: start: 20071230, end: 20080217
  23. ASPIRIN [Concomitant]
     Indication: PRODUCT USED FOR UNKNOWN INDICATION
     Route: 065
  24. PRIMATENE MIST [Concomitant]
     Indication: PRODUCT USED FOR UNKNOWN INDICATION
     Route: 065
  25. GARLIC [Concomitant]
     Indication: PRODUCT USED FOR UNKNOWN INDICATION
     Route: 065
  26. METOPROLOL SUCCINATE [Concomitant]
     Indication: PRODUCT USED FOR UNKNOWN INDICATION
     Route: 065
  27. DOCUSATE SODIUM [Concomitant]
     Indication: PRODUCT USED FOR UNKNOWN INDICATION
     Route: 065
  28. FUROSEMIDE [Concomitant]
     Indication: PRODUCT USED FOR UNKNOWN INDICATION
     Route: 065
  29. DOPAMINE HCL IN 5% DEXTROSE [Concomitant]
     Indication: PRODUCT USED FOR UNKNOWN INDICATION
     Route: 065
  30. ONDANSETRON [Concomitant]
     Indication: PRODUCT USED FOR UNKNOWN INDICATION
     Route: 065
  31. LEVOFLOXACIN [Concomitant]
     Indication: PRODUCT USED FOR UNKNOWN INDICATION
     Route: 065
  32. ACETAMINOPHEN [Concomitant]
     Indication: PRODUCT USED FOR UNKNOWN INDICATION
     Route: 065
  33. ENOXAPARIN [Concomitant]
     Indication: PRODUCT USED FOR UNKNOWN INDICATION
     Route: 065
  34. IPRATROPIUM [Concomitant]
     Indication: PRODUCT USED FOR UNKNOWN INDICATION
     Route: 065
  35. LIDOCAINE 2% [Concomitant]
     Indication: PRODUCT USED FOR UNKNOWN INDICATION
     Route: 065

REACTIONS (39)
  - ABDOMINAL DISTENSION [None]
  - ANAEMIA [None]
  - ASTHENIA [None]
  - BURNING SENSATION [None]
  - CARDIAC FAILURE [None]
  - CARDIOGENIC SHOCK [None]
  - CHEST PAIN [None]
  - COAGULOPATHY [None]
  - COUGH [None]
  - CYANOSIS [None]
  - DEEP VEIN THROMBOSIS [None]
  - DEPRESSION [None]
  - DIZZINESS [None]
  - DUODENAL ULCER [None]
  - FATIGUE [None]
  - FLUID OVERLOAD [None]
  - GASTROINTESTINAL HAEMORRHAGE [None]
  - HYPERBILIRUBINAEMIA [None]
  - HYPERHIDROSIS [None]
  - HYPERPHOSPHATAEMIA [None]
  - HYPONATRAEMIA [None]
  - HYPOTENSION [None]
  - INSOMNIA [None]
  - LEUKOCYTOSIS [None]
  - NAUSEA [None]
  - OEDEMA PERIPHERAL [None]
  - PAIN IN EXTREMITY [None]
  - PULMONARY EMBOLISM [None]
  - PULMONARY OEDEMA [None]
  - PYREXIA [None]
  - RENAL FAILURE ACUTE [None]
  - RENAL PAIN [None]
  - RESPIRATORY FAILURE [None]
  - TACHYCARDIA [None]
  - THROMBOCYTOSIS [None]
  - THROMBOSIS [None]
  - URINARY TRACT INFECTION [None]
  - VISION BLURRED [None]
  - VOMITING [None]
